FAERS Safety Report 5988198-5 (Version None)
Quarter: 2008Q4

REPORT INFORMATION
  Report Type: 
  Country: None (occurrence: None)
  Receive Date: 20081210
  Receipt Date: 20081205
  Transmission Date: 20090506
  Serious: Yes (Other)
  Sender: FDA-Public Use
  Company Number: GB-BRISTOL-MYERS SQUIBB COMPANY-13699392

PATIENT
  Age: 52 Year
  Sex: Female
  Weight: 45 kg

DRUGS (13)
  1. REYATAZ [Suspect]
     Indication: HIV INFECTION
     Route: 048
     Dates: start: 20041005, end: 20061219
  2. AMPRENAVIR [Suspect]
     Route: 048
     Dates: start: 20061219, end: 20061228
  3. COMBIVIR [Suspect]
     Dates: start: 20040622
  4. FOSAMPRENAVIR CALCIUM [Suspect]
     Route: 048
     Dates: start: 20061219, end: 20061228
  5. TRIZIVIR [Suspect]
     Indication: HIV INFECTION
     Route: 048
  6. RITONAVIR [Concomitant]
     Dates: start: 20061202
  7. ZIDOVUDINE [Concomitant]
  8. FUROSEMIDE [Concomitant]
     Route: 048
  9. GLICLAZIDE [Concomitant]
     Route: 048
  10. METFORMIN HCL [Concomitant]
     Route: 048
  11. PHENOXYMETHYL PENICILLIN [Concomitant]
     Route: 048
  12. PRAVASTATIN SODIUM [Concomitant]
     Route: 048
  13. SENNA [Concomitant]
     Route: 048
     Dates: start: 20061202

REACTIONS (4)
  - BACK PAIN [None]
  - MALAISE [None]
  - NEPHROLITHIASIS [None]
  - RASH [None]
